FAERS Safety Report 10363662 (Version 1)
Quarter: 2014Q3

REPORT INFORMATION
  Report Type: Spontaneous
  Country: GR (occurrence: None)
  Receive Date: 20140731
  Receipt Date: 20140731
  Transmission Date: 20150326
  Serious: Yes (Death)
  Sender: FDA-Public Use
  Company Number: 2014GR00957

PATIENT
  Sex: Female

DRUGS (6)
  1. GRANULOCYTE-COLONY STIMULATING FACTORS (G-CSF) (GRANULATOCYTE-COLONY STIMULATING FACTORS (G-CSF)) [Suspect]
     Active Substance: GRANULOCYTE COLONY-STIMULATING FACTOR NOS
     Indication: PROPHYLAXIS
     Dosage: DURING THE INTENSIFIED PHASE OF
  2. PACLITAXEL (PACLITAXEL) 80MG/M2 [Suspect]
     Active Substance: PACLITAXEL
     Indication: BREAST CANCER
     Dosage: 200 MG/M2, 9 CONSECUTIVE WEEKLY CYCLES
  3. EPIRUBICIN (EPIRUBICIN HYDROCHLORIDE) INJECTION, 110MG/M2 [Suspect]
     Active Substance: EPIRUBICIN
     Indication: BREAST CANCER
     Dosage: 110 MG/M2 , 3 CYCLES EVERY 2 WEEKS
  4. CYCLOPHOSPHAMIDE (CYCLOPHOSPHAMIDE) 840 MG/M2 [Suspect]
     Active Substance: CYCLOPHOSPHAMIDE
     Indication: BREAST CANCER
     Dosage: 840 MG/M2, 3 CYCLES EVERY 2 WEEKS
  5. METHOTREXATE (METHOTREXATE) 57MG/M2 [Suspect]
     Active Substance: METHOTREXATE
     Indication: BREAST CANCER
     Dosage: 57MG/M2, 3 CYCLES EVERY 2 WEEKS
  6. FLUOROURACIL (FLUOROURACIL) 840 MG/M2 [Suspect]
     Active Substance: FLUOROURACIL
     Indication: BREAST CANCER
     Dosage: 840 MG/M2 , 3 CYCLES EVERY 2 WEEKS

REACTIONS (1)
  - Death [None]
